FAERS Safety Report 8505841-7 (Version None)
Quarter: 2012Q3

REPORT INFORMATION
  Report Type: 
  Country: None (occurrence: None)
  Receive Date: 20120712
  Receipt Date: 20120704
  Transmission Date: 20120928
  Serious: Yes (Hospitalization, Other)
  Sender: FDA-Public Use
  Company Number: ES-JNJFOC-20120610756

PATIENT
  Sex: Female

DRUGS (1)
  1. ORTHO EVRA [Suspect]
     Indication: CONTRACEPTION
     Route: 062
     Dates: start: 20120101, end: 20120617

REACTIONS (10)
  - PAIN IN EXTREMITY [None]
  - EYE PAIN [None]
  - VOMITING [None]
  - HEADACHE [None]
  - CHEST PAIN [None]
  - FATIGUE [None]
  - VISION BLURRED [None]
  - ARRHYTHMIA [None]
  - PYREXIA [None]
  - ANAEMIA [None]
